FAERS Safety Report 9000812 (Version 1)
Quarter: 2013Q1

REPORT INFORMATION
  Report Type: Spontaneous
  Country: US (occurrence: None)
  Receive Date: 20130103
  Receipt Date: 20130103
  Transmission Date: 20140127
  Serious: Yes (Other)
  Sender: FDA-Public Use
  Company Number: None

PATIENT
  Age: 30 Year
  Sex: Female
  Weight: 126.55 kg

DRUGS (10)
  1. LATUDA [Suspect]
     Route: 048
     Dates: start: 20121203, end: 20121210
  2. PLAQUENIL [Concomitant]
  3. TRAZODONE [Concomitant]
  4. ZANAFLEX [Concomitant]
  5. BIRTH CONTROL [Concomitant]
  6. ATIVAN [Concomitant]
  7. NEURONTIN [Concomitant]
  8. FLOVENT [Concomitant]
  9. CYMBALTA [Concomitant]
  10. WELLBUTRIN XL [Concomitant]

REACTIONS (4)
  - Local swelling [None]
  - Local swelling [None]
  - Oedema [None]
  - Rash [None]
